FAERS Safety Report 16004870 (Version 1)
Quarter: 2019Q1

REPORT INFORMATION
  Report Type: Spontaneous
  Country: GB (occurrence: GB)
  Receive Date: 20190226
  Receipt Date: 20190226
  Transmission Date: 20190418
  Serious: Yes (Other)
  Sender: FDA-Public Use
  Company Number: PHHY2019GB041077

PATIENT
  Age: 48 Year
  Sex: Female
  Weight: 67 kg

DRUGS (7)
  1. FLUCONAZOLE. [Concomitant]
     Active Substance: FLUCONAZOLE
     Indication: CANDIDA INFECTION
     Dosage: UNK
     Route: 065
  2. BETNOVATE [Concomitant]
     Active Substance: BETAMETHASONE
     Indication: RASH
     Dosage: NONE TAKEN IN THE LAST MONTH.
     Route: 065
  3. ITRACONAZOLE. [Suspect]
     Active Substance: ITRACONAZOLE
     Indication: FUNGAL SKIN INFECTION
     Dosage: 200 MG, QD
     Route: 048
     Dates: start: 20190201, end: 20190203
  4. DAKTACORT [Concomitant]
     Active Substance: HYDROCORTISONE\MICONAZOLE NITRATE
     Indication: RASH
     Dosage: UNK
     Route: 065
  5. CALCIPOTRIOL [Concomitant]
     Active Substance: CALCIPOTRIENE
     Indication: GUTTATE PSORIASIS
     Dosage: NONE TAKEN IN THE LAST MONTH.
     Route: 065
  6. ERYTHROMYCIN. [Concomitant]
     Active Substance: ERYTHROMYCIN
     Indication: RASH
     Dosage: NONE TAKEN IN THE LAST MONTH.
     Route: 065
  7. BETAMETHASONE AND CALCIPOTRIOL [Concomitant]
     Indication: GUTTATE PSORIASIS
     Dosage: UNK
     Route: 065

REACTIONS (3)
  - Regurgitation [Recovering/Resolving]
  - Eructation [Recovering/Resolving]
  - Abdominal pain upper [Not Recovered/Not Resolved]

NARRATIVE: CASE EVENT DATE: 20190202
